FAERS Safety Report 9995807 (Version 2)
Quarter: 2014Q2

REPORT INFORMATION
  Report Type: Spontaneous
  Country: US (occurrence: US)
  Receive Date: 20140311
  Receipt Date: 20140509
  Transmission Date: 20141212
  Serious: Yes (Hospitalization, Other)
  Sender: FDA-Public Use
  Company Number: US-BAYER-2014-035075

PATIENT
  Age: 34 Year
  Sex: Female

DRUGS (7)
  1. YAZ [Suspect]
  2. HYDROCODONE W/APAP [Concomitant]
     Indication: PAIN
     Dosage: 5-500 MG EVERY 4 TO 6 HOURS AS NEEDED
     Route: 048
  3. CIPROFLOXACIN [Concomitant]
     Dosage: 500 MG, EVERY 12 HOURS FOR 3 DAYS
  4. NYSTATIN [Concomitant]
     Dosage: 5 ML, 4 TIMES DAILY
     Route: 048
  5. IRON [Concomitant]
  6. ALBUTEROL [Concomitant]
  7. VENOFER [Concomitant]
     Dosage: 200 MG, UNK
     Route: 042

REACTIONS (2)
  - Pulmonary embolism [Recovered/Resolved]
  - Cholelithiasis [None]
